FAERS Safety Report 11126315 (Version 3)
Quarter: 2015Q3

REPORT INFORMATION
  Report Type: Report from Study
  Country: TW (occurrence: TW)
  Receive Date: 20150520
  Receipt Date: 20150730
  Transmission Date: 20151125
  Serious: Yes (Hospitalization)
  Sender: FDA-Public Use
  Company Number: PHHY2015TW057516

PATIENT
  Age: 30 Year
  Sex: Male
  Weight: 55.4 kg

DRUGS (3)
  1. UROCIT-K [Concomitant]
     Active Substance: POTASSIUM CITRATE
     Indication: NEPHROLITHIASIS
     Dosage: 1080 MG, UNK
     Route: 065
     Dates: start: 20150406, end: 20150429
  2. APROVEL [Concomitant]
     Active Substance: IRBESARTAN
     Indication: HYPERTENSION
     Dosage: 150 MG, UNK
     Route: 065
     Dates: start: 20150406, end: 20150429
  3. VOTUBIA [Suspect]
     Active Substance: EVEROLIMUS
     Indication: ANGIOMYOLIPOMA
     Dosage: 4 DF, QD (2.5 MG)
     Route: 048
     Dates: start: 20131202, end: 20150429

REACTIONS (29)
  - Bacteraemia [Recovered/Resolved]
  - Respiratory failure [Recovered/Resolved]
  - Temporal arteritis [Recovered/Resolved]
  - Oliguria [Recovered/Resolved]
  - Nephrolithiasis [Recovered/Resolved]
  - Obstructive uropathy [Recovered/Resolved]
  - Iron deficiency anaemia [Recovered/Resolved]
  - Calculus ureteric [Recovered/Resolved]
  - Pyuria [Recovered/Resolved]
  - Dyspnoea [Recovered/Resolved]
  - Haematuria [Recovered/Resolved]
  - Pyrexia [Recovered/Resolved]
  - Urosepsis [Recovered/Resolved]
  - Flank pain [Recovered/Resolved]
  - Hydronephrosis [Recovered/Resolved]
  - Pulmonary oedema [Recovered/Resolved]
  - Astrocytoma, low grade [Recovered/Resolved]
  - Pyelonephritis acute [Recovered/Resolved]
  - Renal haemorrhage [Recovered/Resolved]
  - Anaemia [Recovered/Resolved]
  - Bacteriuria [Recovered/Resolved]
  - Leukocytosis [Recovered/Resolved]
  - Vitamin B12 deficiency [Recovered/Resolved]
  - Acute kidney injury [Recovered/Resolved]
  - Hypotension [Recovered/Resolved]
  - Escherichia bacteraemia [Recovered/Resolved]
  - Hypertension [Recovered/Resolved]
  - Septic shock [Recovered/Resolved]
  - Respiratory distress [Recovered/Resolved]

NARRATIVE: CASE EVENT DATE: 20150430
